FAERS Safety Report 8791298 (Version 2)
Quarter: 2012Q4

REPORT INFORMATION
  Report Type: 
  Country: US (occurrence: None)
  Receive Date: 20120911
  Receipt Date: 20120918
  Transmission Date: 20130627
  Serious: Yes (Other)
  Sender: FDA-Public Use
  Company Number: AUR-APL-2012-03772

PATIENT
  Sex: Male
  Weight: 100 kg

DRUGS (1)
  1. MIRTAZAPINE [Suspect]
     Indication: DRUG USE FOR UNKNOWN INDICATION
     Route: 048

REACTIONS (4)
  - Anger [None]
  - Weight increased [None]
  - Hypersomnia [None]
  - Disturbance in attention [None]
